FAERS Safety Report 13650948 (Version 1)
Quarter: 2017Q2

REPORT INFORMATION
  Report Type: Spontaneous
  Country: RO (occurrence: RO)
  Receive Date: 20170614
  Receipt Date: 20170614
  Transmission Date: 20170830
  Serious: Yes (Other)
  Sender: FDA-Public Use
  Company Number: RO-B. BRAUN MEDICAL INC.-2021975

PATIENT
  Age: 47 Year
  Sex: Male
  Weight: 70 kg

DRUGS (2)
  1. RINGER [Suspect]
     Active Substance: RINGER^S SOLUTION
     Indication: MEDICATION DILUTION
     Route: 042
     Dates: start: 20170127, end: 20170202
  2. KETOPROFEN. [Concomitant]
     Active Substance: KETOPROFEN

REACTIONS (1)
  - Chills [Recovered/Resolved]

NARRATIVE: CASE EVENT DATE: 20170128
